APPROVED DRUG PRODUCT: TRIHEXYPHENIDYL HYDROCHLORIDE
Active Ingredient: TRIHEXYPHENIDYL HYDROCHLORIDE
Strength: 5MG
Dosage Form/Route: TABLET;ORAL
Application: A091630 | Product #002 | TE Code: AA
Applicant: NATCO PHARMA LTD
Approved: Nov 17, 2010 | RLD: No | RS: No | Type: RX